FAERS Safety Report 7990585-0 (Version None)
Quarter: 2011Q4

REPORT INFORMATION
  Report Type: 
  Country: None (occurrence: None)
  Receive Date: 20111219
  Receipt Date: 20110809
  Transmission Date: 20120403
  Serious: No
  Sender: FDA-Public Use
  Company Number: US-ASTRAZENECA-2011SE47491

PATIENT
  Age: 72 Year
  Sex: Female
  Weight: 64.9 kg

DRUGS (4)
  1. VITAMIN D [Concomitant]
  2. LOVAZA [Concomitant]
  3. CRESTOR [Suspect]
     Indication: HYPERCHOLESTEROLAEMIA
     Route: 048
     Dates: start: 20080101
  4. LOSARTAN POTASSIUM [Concomitant]

REACTIONS (4)
  - MUSCLE SPASMS [None]
  - BLOOD PRESSURE DECREASED [None]
  - DIZZINESS [None]
  - MUSCLE TWITCHING [None]
